FAERS Safety Report 22742518 (Version 3)
Quarter: 2025Q2

REPORT INFORMATION
  Report Type: Report from Study
  Country: AT (occurrence: AT)
  Receive Date: 20230724
  Receipt Date: 20250421
  Transmission Date: 20250717
  Serious: Yes (Hospitalization, Other)
  Sender: GILEAD
  Company Number: AT-ROCHE-3226138

PATIENT
  Age: 64 Year
  Sex: Female

DRUGS (64)
  1. SACITUZUMAB GOVITECAN-HZIY [Suspect]
     Active Substance: SACITUZUMAB GOVITECAN-HZIY
     Indication: HER2 positive breast cancer
     Route: 042
     Dates: start: 20221207, end: 20230105
  2. SACITUZUMAB GOVITECAN-HZIY [Suspect]
     Active Substance: SACITUZUMAB GOVITECAN-HZIY
     Indication: HER2 positive breast cancer
     Route: 042
     Dates: start: 20221207, end: 20230105
  3. PERTUZUMAB [Suspect]
     Active Substance: PERTUZUMAB
     Indication: HER2 positive breast cancer
     Dosage: 840 MG, Q3WK
     Route: 042
     Dates: start: 20190315, end: 20190315
  4. PERTUZUMAB [Suspect]
     Active Substance: PERTUZUMAB
     Dosage: 420 MG, Q3WK 420 MG, ONCE EVERY 3 WK, MOST RECENT DOSE PRIOR TO AE 03/JAN/2020
     Route: 042
     Dates: start: 20190315
  5. PERTUZUMAB [Suspect]
     Active Substance: PERTUZUMAB
     Dosage: 420 MG, Q3WK
     Route: 042
     Dates: start: 20190403, end: 20200103
  6. PERTUZUMAB\TRASTUZUMAB [Suspect]
     Active Substance: PERTUZUMAB\TRASTUZUMAB
     Indication: HER2 positive breast cancer
     Dosage: 600 MG, Q3WK
     Route: 058
     Dates: start: 20220627, end: 20220818
  7. TRASTUZUMAB [Suspect]
     Active Substance: TRASTUZUMAB
     Indication: HER2 positive breast cancer
     Dosage: 510 MG, Q3WK
     Route: 042
     Dates: start: 20190315, end: 20200103
  8. TRASTUZUMAB [Suspect]
     Active Substance: TRASTUZUMAB
     Dosage: 680 MG, Q3WK
     Route: 042
     Dates: start: 20190315, end: 20190315
  9. TRASTUZUMAB [Suspect]
     Active Substance: TRASTUZUMAB
     Dosage: 600 MG, Q3WK
     Route: 042
     Dates: start: 20201021, end: 20210429
  10. ADO-TRASTUZUMAB EMTANSINE [Suspect]
     Active Substance: ADO-TRASTUZUMAB EMTANSINE
     Indication: HER2 positive breast cancer
     Dosage: 292 MG, ONCE EVERY 3 WK, MOST RECENT DOSE PRIOR TO AE 26/AUG/2020
     Route: 042
     Dates: start: 20200129, end: 20200826
  11. ADO-TRASTUZUMAB EMTANSINE [Suspect]
     Active Substance: ADO-TRASTUZUMAB EMTANSINE
     Indication: HER2 positive breast cancer
     Route: 042
     Dates: start: 20200826
  12. ERIBULIN MESYLATE [Suspect]
     Active Substance: ERIBULIN MESYLATE
     Indication: HER2 positive breast cancer
     Dosage: 1.23 MG/M2, ONCE EVERY 3 WK, Q3WK, D1+D8. Q21D
     Route: 042
     Dates: start: 20230209, end: 20230322
  13. ERIBULIN MESYLATE [Suspect]
     Active Substance: ERIBULIN MESYLATE
     Indication: HER2 positive breast cancer
  14. VINORELBINE [Suspect]
     Active Substance: VINORELBINE TARTRATE
     Indication: HER2 positive breast cancer
     Dosage: 58 MG, Q3WK
     Route: 042
     Dates: start: 20190918, end: 20200103
  15. VINORELBINE [Suspect]
     Active Substance: VINORELBINE TARTRATE
     Dosage: 58 MG, Q3WK
     Route: 042
     Dates: start: 20190315, end: 20190625
  16. PHESGO [Suspect]
     Active Substance: HYALURONIDASE-ZZXF\PERTUZUMAB\TRASTUZUMAB
     Indication: HER2 positive breast cancer
     Dosage: 600 MG, Q3WK
     Route: 058
     Dates: start: 20220627, end: 20220818
  17. CAPECITABINE [Suspect]
     Active Substance: CAPECITABINE
     Indication: HER2 positive breast cancer
     Route: 048
     Dates: start: 20210119, end: 20210522
  18. CAPECITABINE [Suspect]
     Active Substance: CAPECITABINE
     Route: 048
     Dates: start: 20201031, end: 20201120
  19. CAPECITABINE [Suspect]
     Active Substance: CAPECITABINE
     Route: 048
     Dates: start: 20201121, end: 20201218
  20. TRASTUZUMAB [Suspect]
     Active Substance: TRASTUZUMAB
     Indication: HER2 positive breast cancer
     Dosage: 680 MILLIGRAM, Q3WK, SOLUTION FOR INFUSION INSTEAD OF SOLUTION FOR INJECTIONINTRAVENOUS USE INSTEAD
     Route: 042
     Dates: start: 20190315, end: 20190315
  21. TRASTUZUMAB [Suspect]
     Active Substance: TRASTUZUMAB
     Dosage: 510 MG, ONCE EVERY 3 WK
     Route: 042
     Dates: start: 20190315, end: 20200103
  22. TRASTUZUMAB [Suspect]
     Active Substance: TRASTUZUMAB
     Dosage: 510 MG, ONCE EVERY 3 WK
     Route: 042
     Dates: start: 20190403, end: 20200103
  23. TRASTUZUMAB [Suspect]
     Active Substance: TRASTUZUMAB
     Dosage: 600 MG, ONCE EVERY 3 WK, MOST RECENT DOSE PRIOR TO AE, LAST ADMINISTRATION: 29-APR-2021
     Route: 042
     Dates: start: 20201021
  24. TRASTUZUMAB [Suspect]
     Active Substance: TRASTUZUMAB
     Dosage: 600 MG, ONCE EVERY 3 WK
     Route: 058
     Dates: start: 20220727, end: 20220818
  25. TUCATINIB [Suspect]
     Active Substance: TUCATINIB
     Indication: HER2 positive breast cancer
     Dosage: 200 MG, BID
     Route: 048
     Dates: start: 20210509, end: 20210528
  26. TUCATINIB [Suspect]
     Active Substance: TUCATINIB
     Indication: HER2 positive breast cancer
     Dosage: 250 MG, BID
     Route: 048
     Dates: start: 20210108, end: 20210428
  27. TUCATINIB [Suspect]
     Active Substance: TUCATINIB
     Dosage: 300 MG, BID, AMOUNT PER ADMINISTRATION WAS CHANGED FROM 30 TO 300 MG
     Route: 048
     Dates: start: 20201120, end: 20210108
  28. DOXORUBICIN [Suspect]
     Active Substance: DOXORUBICIN
     Indication: HER2 positive breast cancer
     Route: 042
     Dates: start: 20220627, end: 20220818
  29. DOXORUBICIN [Suspect]
     Active Substance: DOXORUBICIN
     Indication: HER2 positive breast cancer
     Dosage: 30 MG/M2, ONCE EVERY 3 WK
     Route: 042
     Dates: start: 20220727, end: 20220818
  30. DEXAMETHASONE [Concomitant]
     Active Substance: DEXAMETHASONE
     Indication: Prophylaxis
     Route: 048
     Dates: start: 20210628, end: 20220514
  31. DEXAMETHASONE [Concomitant]
     Active Substance: DEXAMETHASONE
     Route: 048
     Dates: start: 20221208, end: 20230107
  32. DEXAMETHASONE [Concomitant]
     Active Substance: DEXAMETHASONE
     Route: 048
     Dates: start: 20221207, end: 20230105
  33. DEXAMETHASONE [Concomitant]
     Active Substance: DEXAMETHASONE
     Route: 048
     Dates: start: 20230209
  34. AMOXICILLIN\CLAVULANATE POTASSIUM [Concomitant]
     Active Substance: AMOXICILLIN\CLAVULANATE POTASSIUM
     Indication: Product used for unknown indication
     Dates: start: 20191030, end: 20191107
  35. AMOXICILLIN\CLAVULANATE POTASSIUM [Concomitant]
     Active Substance: AMOXICILLIN\CLAVULANATE POTASSIUM
     Route: 048
     Dates: start: 20230215, end: 20230225
  36. EMEND [Concomitant]
     Active Substance: APREPITANT
     Indication: Nausea
     Dates: start: 20210722
  37. EMEND [Concomitant]
     Active Substance: APREPITANT
     Dates: start: 20210721
  38. PREDNISOLONE SODIUM SUCCINATE [Concomitant]
     Active Substance: PREDNISOLONE SODIUM SUCCINATE
     Indication: Prophylaxis
     Dates: start: 20220627, end: 20220915
  39. PREDNISOLONE SODIUM SUCCINATE [Concomitant]
     Active Substance: PREDNISOLONE SODIUM SUCCINATE
     Route: 042
     Dates: start: 20220727, end: 20220915
  40. LOPERAMIDE HYDROCHLORIDE [Concomitant]
     Active Substance: LOPERAMIDE HYDROCHLORIDE
     Indication: Prophylaxis
     Dates: start: 20190315
  41. POLYETHYLENE GLYCOL 3350\POTASSIUM CHLORIDE\SODIUM BICARBONATE\SODIUM [Concomitant]
     Active Substance: POLYETHYLENE GLYCOL 3350\POTASSIUM CHLORIDE\SODIUM BICARBONATE\SODIUM CHLORIDE
     Indication: Prophylaxis
     Route: 048
     Dates: start: 20210722
  42. SUCRALFATE [Concomitant]
     Active Substance: SUCRALFATE
     Indication: Prophylaxis
     Route: 048
     Dates: start: 20190403
  43. SUCRALFATE [Concomitant]
     Active Substance: SUCRALFATE
     Indication: HER2 positive breast cancer
  44. ZYPREXA [Concomitant]
     Active Substance: OLANZAPINE
     Indication: Nausea
     Route: 048
     Dates: start: 20210721
  45. DIPHENHYDRAMINE [Concomitant]
     Active Substance: DIPHENHYDRAMINE
     Indication: Prophylaxis
     Route: 048
     Dates: start: 20221207, end: 20230105
  46. METOCLOPRAMIDE HYDROCHLORIDE [Concomitant]
     Active Substance: METOCLOPRAMIDE HYDROCHLORIDE
     Indication: Nausea
     Route: 048
     Dates: start: 20210708
  47. ACETAMINOPHEN [Concomitant]
     Active Substance: ACETAMINOPHEN
     Indication: Prophylaxis
     Route: 065
     Dates: start: 20221207, end: 20230105
  48. NADROPARIN CALCIUM [Concomitant]
     Active Substance: NADROPARIN CALCIUM
     Indication: Prophylaxis
     Route: 058
     Dates: start: 20190208
  49. ONDANSETRON [Concomitant]
     Active Substance: ONDANSETRON
     Indication: Prophylaxis
     Route: 048
     Dates: start: 20221208, end: 20230107
  50. ONDANSETRON [Concomitant]
     Active Substance: ONDANSETRON
     Route: 048
     Dates: start: 20230209
  51. ONDANSETRON [Concomitant]
     Active Substance: ONDANSETRON
     Route: 048
     Dates: start: 20221207, end: 20230105
  52. ONDANSETRON [Concomitant]
     Active Substance: ONDANSETRON
     Route: 048
     Dates: start: 20190315
  53. ESOMEPRAZOLE [Concomitant]
     Active Substance: ESOMEPRAZOLE
     Indication: Abdominal pain upper
     Route: 065
     Dates: start: 20211215
  54. ESOMEPRAZOLE [Concomitant]
     Active Substance: ESOMEPRAZOLE
     Indication: Abdominal pain upper
  55. ESOMEPRAZOLE [Concomitant]
     Active Substance: ESOMEPRAZOLE
     Indication: Prophylaxis
     Route: 048
  56. ESOMEPRAZOLE [Concomitant]
     Active Substance: ESOMEPRAZOLE
     Dosage: 40 MG, QD
     Route: 048
     Dates: start: 20190726
  57. AMOXICILLIN\CLAVULANATE POTASSIUM [Concomitant]
     Active Substance: AMOXICILLIN\CLAVULANATE POTASSIUM
     Indication: Product used for unknown indication
     Dosage: 1 G, BID,16 OCT 2019 } EXANTHEMA AREA OF CLAVICULA
     Dates: start: 20191030, end: 20191107
  58. APREPITANT [Concomitant]
     Active Substance: APREPITANT
     Indication: Product used for unknown indication
     Dates: start: 20210721, end: 20220512
  59. APREPITANT [Concomitant]
     Active Substance: APREPITANT
     Route: 048
     Dates: start: 20210721
  60. APREPITANT [Concomitant]
     Active Substance: APREPITANT
     Route: 048
     Dates: start: 20210722, end: 20220514
  61. APREPITANT [Concomitant]
     Active Substance: APREPITANT
     Route: 048
     Dates: start: 20210722
  62. APREPITANT [Concomitant]
     Active Substance: APREPITANT
     Route: 048
     Dates: start: 20210721, end: 20220512
  63. ZOFRAN [Concomitant]
     Active Substance: ONDANSETRON HYDROCHLORIDE
     Indication: Prophylaxis
     Route: 048
     Dates: start: 20190315
  64. ZOFRAN [Concomitant]
     Active Substance: ONDANSETRON HYDROCHLORIDE
     Route: 048
     Dates: start: 20211207, end: 20230105

REACTIONS (2)
  - Pneumothorax [Recovered/Resolved with Sequelae]
  - Pneumonia [Not Recovered/Not Resolved]

NARRATIVE: CASE EVENT DATE: 20221115
